FAERS Safety Report 20545817 (Version 1)
Quarter: 2022Q1

REPORT INFORMATION
  Report Type: Spontaneous
  Country: FR (occurrence: FR)
  Receive Date: 20220303
  Receipt Date: 20220303
  Transmission Date: 20220423
  Serious: Yes (Other)
  Sender: FDA-Public Use
  Company Number: FR-AMGEN-FRASP2022032556

PATIENT

DRUGS (2)
  1. ADALIMUMAB [Suspect]
     Active Substance: ADALIMUMAB
     Indication: Uveitis
     Dosage: 80 MILLIGRAM, Q2WK
     Route: 058
  2. ADALIMUMAB [Suspect]
     Active Substance: ADALIMUMAB
     Dosage: 40 MILLIGRAM, Q2WK
     Route: 058

REACTIONS (23)
  - Cytopenia [Unknown]
  - Systemic lupus erythematosus [Unknown]
  - Optic neuritis [Unknown]
  - Pneumonia [Unknown]
  - Pyelonephritis [Unknown]
  - Sarcoidosis [Unknown]
  - Iridocyclitis [Unknown]
  - Uveitis [Unknown]
  - Chorioretinitis [Unknown]
  - Behcet^s syndrome [Unknown]
  - Hallucination [Unknown]
  - Therapy partial responder [Unknown]
  - Stomatitis [Unknown]
  - Fatigue [Unknown]
  - Arthralgia [Unknown]
  - Migraine [Unknown]
  - Bronchitis [Unknown]
  - Furuncle [Unknown]
  - Viral infection [Unknown]
  - Tinea versicolour [Unknown]
  - Skin infection [Unknown]
  - Injection site reaction [Unknown]
  - Hypersensitivity [Unknown]
